FAERS Safety Report 24401378 (Version 2)
Quarter: 2024Q4

REPORT INFORMATION
  Report Type: Report from Study
  Country: JP (occurrence: JP)
  Receive Date: 20241007
  Receipt Date: 20241105
  Transmission Date: 20250114
  Serious: Yes (Death)
  Sender: JOHNSON AND JOHNSON
  Company Number: JP-JNJFOC-20241011563

PATIENT
  Age: 44 Year
  Sex: Male
  Weight: 40 kg

DRUGS (5)
  1. EPOPROSTENOL SODIUM [Suspect]
     Active Substance: EPOPROSTENOL SODIUM
     Indication: Pulmonary arterial hypertension
     Dosage: 2NG/KG/MIN
     Route: 042
     Dates: start: 20240921, end: 202409
  2. EPOPROSTENOL SODIUM [Suspect]
     Active Substance: EPOPROSTENOL SODIUM
     Dosage: 6NG/KG/MIN
     Route: 042
     Dates: start: 202409, end: 20240930
  3. EPOPROSTENOL SODIUM [Suspect]
     Active Substance: EPOPROSTENOL SODIUM
     Dosage: 2NG/KG/MIN
     Route: 042
     Dates: start: 20240922, end: 202409
  4. EPOPROSTENOL SODIUM [Suspect]
     Active Substance: EPOPROSTENOL SODIUM
     Dosage: 6NG/KG/MIN
     Route: 042
     Dates: start: 202409, end: 20240928
  5. HEPARIN CALCIUM [Concomitant]
     Active Substance: HEPARIN CALCIUM
     Route: 042
     Dates: start: 20240920, end: 20240930

REACTIONS (2)
  - Disseminated intravascular coagulation [Fatal]
  - Pulmonary arterial hypertension [Fatal]

NARRATIVE: CASE EVENT DATE: 20240901
